FAERS Safety Report 7542546-3 (Version None)
Quarter: 2011Q2

REPORT INFORMATION
  Report Type: 
  Country: None (occurrence: None)
  Receive Date: 20110613
  Receipt Date: 20110606
  Transmission Date: 20111010
  Serious: Yes (Hospitalization)
  Sender: FDA-Public Use
  Company Number: US-B.I. PHARMACEUTICALS,INC./RIDGEFIELD-2011-BP-14759BP

PATIENT
  Sex: Male

DRUGS (14)
  1. CHLORPHENIRAMINE MALEATE [Concomitant]
     Indication: MULTIPLE ALLERGIES
     Dosage: 4 MG
     Route: 048
  2. FISH OIL [Concomitant]
     Indication: SUPPLEMENTATION THERAPY
     Dosage: 2000 U
     Route: 048
  3. LASIX [Concomitant]
     Indication: CARDIAC DISORDER
     Dosage: 40 MG
     Route: 048
  4. PRADAXA [Suspect]
     Indication: ATRIAL FIBRILLATION
     Dosage: 300 MG
     Route: 048
     Dates: start: 20110301
  5. LIPITOR [Concomitant]
     Indication: BLOOD CHOLESTEROL INCREASED
     Dosage: 40 MG
     Route: 048
  6. POTASSIUM CHLORIDE [Concomitant]
     Indication: SUPPLEMENTATION THERAPY
     Dosage: 978 MG
     Route: 048
  7. HYDROCODONE BITARTRATE [Concomitant]
     Indication: PAIN
     Dosage: 10/500MG
     Route: 048
  8. LYRICA [Concomitant]
     Dosage: 75 MG
     Route: 048
  9. ARICEPT [Concomitant]
     Dosage: 5 MG
     Route: 048
  10. RESTORIL [Concomitant]
     Dosage: 30 MG
     Route: 048
  11. LEXAPRO [Concomitant]
     Dosage: 10 MG
     Route: 048
  12. ADCIRCA [Concomitant]
     Dosage: 20 MG
     Route: 048
  13. CALCIUM CARBONATE [Concomitant]
     Indication: SUPPLEMENTATION THERAPY
     Dosage: 600 MG
     Route: 048
  14. FLOMAX [Concomitant]
     Dosage: 0.4 MG
     Route: 048

REACTIONS (2)
  - MELAENA [None]
  - RECTAL HAEMORRHAGE [None]
